FAERS Safety Report 21296598 (Version 1)
Quarter: 2022Q3

REPORT INFORMATION
  Report Type: Spontaneous
  Country: US (occurrence: None)
  Receive Date: 20220902
  Receipt Date: 20220902
  Transmission Date: 20221027
  Serious: No
  Sender: FDA-Public Use
  Company Number: None

PATIENT
  Age: 76 Year
  Sex: Female
  Weight: 68.04 kg

DRUGS (1)
  1. ADBRY [Suspect]
     Active Substance: TRALOKINUMAB-LDRM
     Indication: Dermatitis atopic
     Dosage: FREQUENCY : AS DIRECTED; (INJECT 600MG 4Y SUBCUTANEOUS ON DAY 1, THEN 300MG (2 SYRINGES) EVERY 2 WEE
     Route: 058
     Dates: start: 202207

REACTIONS (1)
  - Knee arthroplasty [None]
